FAERS Safety Report 5903308-3 (Version None)
Quarter: 2008Q3

REPORT INFORMATION
  Report Type: 
  Country: None (occurrence: None)
  Receive Date: 20080930
  Receipt Date: 20080925
  Transmission Date: 20090109
  Serious: Yes (Hospitalization)
  Sender: FDA-Public Use
  Company Number: B0538686A

PATIENT
  Age: 26 Year
  Sex: Male

DRUGS (2)
  1. AMOXICILLIN [Suspect]
     Indication: DRUG USE FOR UNKNOWN INDICATION
     Dosage: 1G SINGLE DOSE
     Route: 065
     Dates: start: 20080801, end: 20080801
  2. ULTRAVIST (PHARMACY BULK) [Suspect]
     Indication: DRUG USE FOR UNKNOWN INDICATION
     Route: 042
     Dates: start: 20080801, end: 20080801

REACTIONS (5)
  - ANXIETY [None]
  - BRONCHOSPASM [None]
  - PRURITUS [None]
  - TACHYCARDIA [None]
  - URTICARIA [None]
